FAERS Safety Report 17912201 (Version 1)
Quarter: 2020Q2

REPORT INFORMATION
  Report Type: Spontaneous
  Country: FR (occurrence: FR)
  Receive Date: 20200618
  Receipt Date: 20200618
  Transmission Date: 20200714
  Serious: Yes (Hospitalization, Other)
  Sender: FDA-Public Use
  Company Number: FR-009507513-2006FRA003994

PATIENT
  Sex: Male

DRUGS (2)
  1. LIPTRUZET [Suspect]
     Active Substance: ATORVASTATIN CALCIUM\EZETIMIBE
     Dosage: STRENGTH: 10/40 (UNIT NOT REPORTED)
     Route: 048
     Dates: start: 201810, end: 201906
  2. LIPTRUZET [Suspect]
     Active Substance: ATORVASTATIN CALCIUM\EZETIMIBE
     Dosage: STRENGTH: 10/80 (UNIT NOT REPORTED)
     Route: 048
     Dates: start: 201906, end: 2020

REACTIONS (2)
  - Suspected COVID-19 [Unknown]
  - Hepatitis [Unknown]

NARRATIVE: CASE EVENT DATE: 2020
